FAERS Safety Report 11713124 (Version 1)
Quarter: 2015Q4

REPORT INFORMATION
  Report Type: Spontaneous
  Country: US (occurrence: US)
  Receive Date: 20151109
  Receipt Date: 20151109
  Transmission Date: 20160304
  Serious: No
  Sender: FDA-Public Use
  Company Number: US-LEO PHARMA-237987

PATIENT
  Age: 5 Year
  Sex: Male

DRUGS (1)
  1. PICATO [Suspect]
     Active Substance: INGENOL MEBUTATE
     Indication: MOLLUSCUM CONTAGIOSUM
     Dates: start: 20151027

REACTIONS (6)
  - Drug administered to patient of inappropriate age [Unknown]
  - Drug administered at inappropriate site [Unknown]
  - Application site inflammation [Not Recovered/Not Resolved]
  - Application site erythema [Not Recovered/Not Resolved]
  - Product use issue [Unknown]
  - Application site pain [Not Recovered/Not Resolved]
